FAERS Safety Report 5509682-4 (Version None)
Quarter: 2007Q4

REPORT INFORMATION
  Report Type: 
  Country: None (occurrence: None)
  Receive Date: 20071107
  Receipt Date: 20071107
  Transmission Date: 20080405
  Serious: Yes (Hospitalization)
  Sender: FDA-Public Use
  Company Number: None

PATIENT
  Age: 49 Year
  Sex: Male
  Weight: 116 kg

DRUGS (11)
  1. COUMADIN [Suspect]
     Indication: ATRIAL FIBRILLATION
     Dosage: 1.5 TABS (11.25MG) S,S,M,T,R,F PO
     Route: 048
     Dates: start: 20060720, end: 20070121
  2. COUMADIN [Suspect]
     Indication: ATRIAL FIBRILLATION
     Dosage: 2 TABS (15MG) W PO
     Route: 048
     Dates: start: 20060720, end: 20070121
  3. ALLOPURINOL [Concomitant]
  4. ASPIRIN [Concomitant]
  5. ATORVASTATIN CALCIUM [Concomitant]
  6. LANOXIN [Concomitant]
  7. FUROSEMIDE [Concomitant]
  8. GEMFIBROZIL [Concomitant]
  9. GLIPIZIDE [Concomitant]
  10. LOSARTAN POTASSIUM [Concomitant]
  11. METOPROLOL TARTRATE [Concomitant]

REACTIONS (7)
  - BLOOD PRESSURE DECREASED [None]
  - COLONIC POLYP [None]
  - DIVERTICULUM INTESTINAL [None]
  - INTERNATIONAL NORMALISED RATIO INCREASED [None]
  - LOWER GASTROINTESTINAL HAEMORRHAGE [None]
  - RECTAL HAEMORRHAGE [None]
  - VOMITING [None]
